FAERS Safety Report 6162371-8 (Version None)
Quarter: 2009Q2

REPORT INFORMATION
  Report Type: 
  Country: None (occurrence: None)
  Receive Date: 20090421
  Receipt Date: 20090408
  Transmission Date: 20091009
  Serious: Yes (Other)
  Sender: FDA-Public Use
  Company Number: FI-PFIZER INC-2009192561

PATIENT

DRUGS (3)
  1. TREXAN [Interacting]
     Indication: ECTOPIC PREGNANCY
     Dosage: 77 MG, ONCE
     Route: 030
     Dates: start: 20080425
  2. DALACIN [Suspect]
     Indication: STAPHYLOCOCCAL INFECTION
     Dosage: 300 MG X 4 FOR A WEEK
     Route: 065
     Dates: start: 20080515
  3. DOXIMYCIN [Interacting]
     Indication: STAPHYLOCOCCAL INFECTION
     Dosage: 150 MG X 1 FOR WEEK
     Route: 065
     Dates: start: 20080515

REACTIONS (2)
  - DRUG INTERACTION [None]
  - LANGERHANS' CELL GRANULOMATOSIS [None]
